FAERS Safety Report 24299766 (Version 1)
Quarter: 2024Q3

REPORT INFORMATION
  Report Type: Spontaneous
  Country: FR (occurrence: FR)
  Receive Date: 20240909
  Receipt Date: 20240909
  Transmission Date: 20241016
  Serious: Yes (Other)
  Sender: MYLAN
  Company Number: None

PATIENT
  Age: 36 Year
  Sex: Female
  Weight: 50 kg

DRUGS (7)
  1. ONDANSETRON [Interacting]
     Active Substance: ONDANSETRON
     Indication: Vomiting
     Dosage: 8 MILLIGRAM, BID (8 MG/12 HOURS)
     Route: 042
     Dates: start: 20240730
  2. CIPROFLOXACIN [Interacting]
     Active Substance: CIPROFLOXACIN
     Indication: Yersinia infection
     Dosage: 500 MILLIGRAM, BID (500 MG X 2 /DAY)
     Route: 048
     Dates: start: 20240802, end: 20240809
  3. LENVATINIB MESYLATE [Suspect]
     Active Substance: LENVATINIB MESYLATE
     Indication: Malignant melanoma
     Dosage: 20 MILLIGRAM, QD (20 MG/D)
     Route: 048
     Dates: start: 20240326, end: 20240808
  4. METHADONE [Interacting]
     Active Substance: METHADONE HYDROCHLORIDE
     Indication: Dependence
     Dosage: 30 MILLIGRAM, QD (30 MG/DAY)
     Route: 048
     Dates: start: 2016
  5. METOCLOPRAMIDE [Interacting]
     Active Substance: METOCLOPRAMIDE
     Indication: Vomiting
     Dosage: 10 MILLIGRAM, Q8H (10 MG/8 H)
     Route: 048
     Dates: start: 20240722, end: 20240729
  6. METOCLOPRAMIDE [Interacting]
     Active Substance: METOCLOPRAMIDE
     Dosage: 10 MILLIGRAM, Q8H (10 MG/8 H)
     Route: 048
     Dates: start: 20240806, end: 20240808
  7. METOCLOPRAMIDE [Interacting]
     Active Substance: METOCLOPRAMIDE
     Indication: Vomiting
     Dosage: 10 MILLIGRAM, Q8H (10 MILLIGRAM, Q8H (10 MG/8 H)
     Route: 042
     Dates: start: 20240730, end: 20240805

REACTIONS (2)
  - Electrocardiogram QT prolonged [Recovered/Resolved]
  - Drug interaction [Unknown]

NARRATIVE: CASE EVENT DATE: 20240808
